FAERS Safety Report 16695317 (Version 3)
Quarter: 2019Q3

REPORT INFORMATION
  Report Type: Spontaneous
  Country: US (occurrence: US)
  Receive Date: 20190813
  Receipt Date: 20190830
  Transmission Date: 20191004
  Serious: No
  Sender: FDA-Public Use
  Company Number: US-MTPC-MTDA2019-0066926

PATIENT

DRUGS (2)
  1. RADICAVA [Suspect]
     Active Substance: EDARAVONE
     Dosage: 60 MILLIGRAM, QD FOR 10 DAYS FOLLOWED BY 14 DAY DRUG-FREE PERIOD60 MILLIGRAM, QD
     Route: 042
  2. RADICAVA [Suspect]
     Active Substance: EDARAVONE
     Indication: AMYOTROPHIC LATERAL SCLEROSIS
     Dosage: 60 MILLIGRAM, QD FOR 14 DAYS FOLLOWED BY 14 DAY DRUG-FREE PERIOD60 MILLIGRAM, QD
     Route: 042
     Dates: start: 20190610, end: 201906

REACTIONS (2)
  - Temperature difference of extremities [Unknown]
  - Pain in extremity [Recovering/Resolving]
